FAERS Safety Report 20751752 (Version 2)
Quarter: 2022Q2

REPORT INFORMATION
  Report Type: Spontaneous
  Country: DE (occurrence: DE)
  Receive Date: 20220426
  Receipt Date: 20220502
  Transmission Date: 20220721
  Serious: Yes (Other)
  Sender: FDA-Public Use
  Company Number: DE-NOVARTISPH-NVSC2022DE093676

PATIENT
  Age: 9 Year
  Sex: Male
  Weight: 21 kg

DRUGS (1)
  1. MEKINIST [Suspect]
     Active Substance: TRAMETINIB DIMETHYL SULFOXIDE
     Indication: Neurofibroma
     Dosage: 0.5 MG (2 TABLETS)
     Route: 048
     Dates: start: 20190523

REACTIONS (5)
  - Paronychia [Unknown]
  - Cheilitis [Unknown]
  - Gastrointestinal disorder [Unknown]
  - Product use issue [Unknown]
  - Product use in unapproved indication [Unknown]
